FAERS Safety Report 5476800-6 (Version None)
Quarter: 2007Q4

REPORT INFORMATION
  Report Type: 
  Country: None (occurrence: None)
  Receive Date: 20071002
  Receipt Date: 20070920
  Transmission Date: 20080405
  Serious: Yes (Other)
  Sender: FDA-Public Use
  Company Number: 070924-0000942

PATIENT

DRUGS (1)
  1. DESOXYN [Suspect]
     Indication: DRUG USE FOR UNKNOWN INDICATION

REACTIONS (2)
  - AORTIC DISSECTION [None]
  - HYPERTENSIVE CRISIS [None]
